FAERS Safety Report 8279380-5 (Version None)
Quarter: 2012Q2

REPORT INFORMATION
  Report Type: 
  Country: None (occurrence: None)
  Receive Date: 20120412
  Receipt Date: 20110804
  Transmission Date: 20120825
  Serious: No
  Sender: FDA-Public Use
  Company Number: US-ASTRAZENECA-2011SE34284

PATIENT
  Age: 64 Year
  Sex: Female

DRUGS (5)
  1. PRILOSEC [Suspect]
     Route: 048
  2. SYMBICORT [Concomitant]
  3. CRESTOR [Concomitant]
  4. NEXIUM [Suspect]
     Route: 048
  5. SPIRIVA [Concomitant]

REACTIONS (10)
  - RETCHING [None]
  - GASTROOESOPHAGEAL REFLUX DISEASE [None]
  - PRODUCTIVE COUGH [None]
  - THERAPEUTIC RESPONSE UNEXPECTED [None]
  - DYSPNOEA [None]
  - OESOPHAGEAL DISORDER [None]
  - ENURESIS [None]
  - DIARRHOEA [None]
  - COUGH [None]
  - VOMITING [None]
